FAERS Safety Report 17425757 (Version 1)
Quarter: 2020Q1

REPORT INFORMATION
  Report Type: Spontaneous
  Country: US (occurrence: US)
  Receive Date: 20200218
  Receipt Date: 20200218
  Transmission Date: 20200409
  Serious: Yes (Other)
  Sender: FDA-Public Use
  Company Number: US-TEVA-2020-US-1186776

PATIENT
  Age: 67 Year
  Sex: Female

DRUGS (9)
  1. AUSTEDO [Suspect]
     Active Substance: DEUTETRABENAZINE
     Dosage: 24 MILLIGRAM DAILY;
     Route: 048
     Dates: end: 20200205
  2. KLONOPIN ORAL TABLET 0.5 MG [Concomitant]
     Route: 048
  3. SYMBICORT INHALATION AEROSOL 80-4.5 MCG/ACT [Concomitant]
  4. PROVIGIL ORAL TABLET 200 MG [Concomitant]
     Route: 048
  5. TOPIRAMATE ORAL 50 MG [Concomitant]
     Route: 048
  6. RISPERDAL ORAL TABLET 1 MG [Concomitant]
     Route: 048
  7. XOLAIR SUBCUTANEOUS SOLUTION PREFILLED SYRINGE 150 MG/ML [Concomitant]
     Route: 058
  8. AUSTEDO [Suspect]
     Active Substance: DEUTETRABENAZINE
     Indication: TARDIVE DYSKINESIA
     Route: 048
     Dates: start: 20200130
  9. PROAIR HFA INHALATION AEROSOL SOLUTION 108 (90 BASE) MCG/ACT [Concomitant]

REACTIONS (3)
  - Therapy cessation [Unknown]
  - Suicidal ideation [Unknown]
  - Insurance issue [Unknown]

NARRATIVE: CASE EVENT DATE: 202002
